FAERS Safety Report 6305862-9 (Version None)
Quarter: 2009Q3

REPORT INFORMATION
  Report Type: 
  Country: None (occurrence: None)
  Receive Date: 20090812
  Receipt Date: 20071026
  Transmission Date: 20100115
  Serious: Yes (Hospitalization)
  Sender: FDA-Public Use
  Company Number: US-ASTRAZENECA-2007UW10964

PATIENT
  Age: 13246 Day
  Sex: Male

DRUGS (8)
  1. SEROQUEL [Suspect]
     Indication: SLEEP DISORDER
     Route: 048
     Dates: start: 19990101, end: 20060901
  2. SEROQUEL [Suspect]
     Route: 048
     Dates: start: 20041009
  3. ZYPREXA [Suspect]
     Dates: start: 20000101, end: 20060101
  4. RANITIDINE [Concomitant]
     Route: 048
     Dates: start: 20041004
  5. PLAVIX [Concomitant]
     Dates: start: 20030301
  6. WELLBUTRIN [Concomitant]
     Route: 048
     Dates: start: 20050416
  7. CLARINEX [Concomitant]
     Route: 048
     Dates: start: 20041129
  8. DEPAKOTE [Concomitant]
     Indication: MOOD ALTERED
     Dates: start: 20030616

REACTIONS (6)
  - DIABETES MELLITUS [None]
  - DIABETES MELLITUS INADEQUATE CONTROL [None]
  - HYPOGLYCAEMIA [None]
  - HYPOGLYCAEMIC SEIZURE [None]
  - LOSS OF CONSCIOUSNESS [None]
  - SYNCOPE [None]
